FAERS Safety Report 5997994-X (Version None)
Quarter: 2008Q4

REPORT INFORMATION
  Report Type: 
  Country: None (occurrence: None)
  Receive Date: 20081211
  Receipt Date: 20081126
  Transmission Date: 20090506
  Serious: Yes (Death)
  Sender: FDA-Public Use
  Company Number: KV200800636

PATIENT
  Age: 83 Year
  Sex: Male
  Weight: 79.4 kg

DRUGS (1)
  1. PROPAFENONE HYDROCHLORIDE(PROPAFENONE HYDROCHLORIDE) TABLET [Suspect]
     Indication: CARDIAC DISORDER

REACTIONS (3)
  - LUNG NEOPLASM MALIGNANT [None]
  - MALIGNANT NEOPLASM PROGRESSION [None]
  - PRODUCT QUALITY ISSUE [None]
